FAERS Safety Report 9775145 (Version 1)
Quarter: 2013Q4

REPORT INFORMATION
  Report Type: Spontaneous
  Country: US (occurrence: US)
  Receive Date: 20131220
  Receipt Date: 20131220
  Transmission Date: 20140711
  Serious: No
  Sender: FDA-Public Use
  Company Number: US-PFIZER INC-2013361593

PATIENT
  Sex: Male

DRUGS (1)
  1. ATORVASTATIN CALCIUM [Suspect]
     Dosage: 5 MG (CUTTING 10MG TABLET INTO HALF), ALTERNATE DAY
     Route: 048

REACTIONS (2)
  - Inappropriate schedule of drug administration [Unknown]
  - Muscle spasms [Unknown]
